FAERS Safety Report 7354552-2 (Version None)
Quarter: 2011Q1

REPORT INFORMATION
  Report Type: 
  Country: None (occurrence: None)
  Receive Date: 20110316
  Receipt Date: 20100908
  Transmission Date: 20110831
  Serious: Yes (Hospitalization, Other)
  Sender: FDA-Public Use
  Company Number: US-BAYER-201018470NA

PATIENT
  Sex: Female
  Weight: 56.818 kg

DRUGS (13)
  1. YAZ [Suspect]
     Indication: DYSMENORRHOEA
  2. POTASSIUM CHLORIDE [Concomitant]
  3. YAZ [Suspect]
     Indication: CONTRACEPTION
     Route: 048
     Dates: start: 20070701, end: 20090501
  4. YASMIN [Suspect]
     Indication: MENORRHAGIA
  5. MULTI-VITAMINS [Concomitant]
  6. NEURONTIN [Concomitant]
     Indication: RESTLESS LEGS SYNDROME
     Route: 048
  7. YASMIN [Suspect]
     Indication: CONTRACEPTION
     Route: 048
     Dates: start: 20020101, end: 20051201
  8. MOTRIN [Concomitant]
  9. ASPIRIN [Concomitant]
  10. YASMIN [Suspect]
     Indication: DYSMENORRHOEA
  11. YAZ [Suspect]
     Indication: MENORRHAGIA
  12. SINGULAIR [Concomitant]
     Indication: MULTIPLE ALLERGIES
     Dosage: DAILY DOSE 4 MG
     Route: 048
  13. LEXAPRO [Concomitant]
     Indication: DEPRESSION
     Dosage: 10 MG (DAILY DOSE)
     Route: 048

REACTIONS (3)
  - PAIN IN EXTREMITY [None]
  - DEEP VEIN THROMBOSIS [None]
  - OEDEMA PERIPHERAL [None]
